FAERS Safety Report 4743620-7 (Version None)
Quarter: 2005Q3

REPORT INFORMATION
  Report Type: 
  Country: None (occurrence: None)
  Receive Date: 20050810
  Receipt Date: 20050810
  Transmission Date: 20060218
  Serious: Yes (Other)
  Sender: FDA-Public Use
  Company Number: None

PATIENT
  Age: 48 Year
  Sex: Male
  Weight: 82.5547 kg

DRUGS (10)
  1. ZETIA [Suspect]
     Indication: BLOOD CHOLESTEROL INCREASED
     Dosage: 10MG  PO
     Route: 048
     Dates: start: 20050414, end: 20050803
  2. LIPITOR [Concomitant]
  3. KALETRA [Concomitant]
  4. EPZICOM [Concomitant]
  5. METROPOLOL [Concomitant]
  6. AMILODIPINE [Concomitant]
  7. CLONIDINE [Concomitant]
  8. NEURONTIN [Concomitant]
  9. LORTIDINE [Concomitant]
  10. METOPROLOL [Concomitant]

REACTIONS (1)
  - BLOOD CREATINE PHOSPHOKINASE INCREASED [None]
